FAERS Safety Report 5569935-0 (Version None)
Quarter: 2007Q4

REPORT INFORMATION
  Report Type: 
  Country: None (occurrence: None)
  Receive Date: 20071220
  Receipt Date: 20071214
  Transmission Date: 20080405
  Serious: Yes (Hospitalization, Other)
  Sender: FDA-Public Use
  Company Number: JP-MERCK-0710USA00577

PATIENT
  Age: 57 Year
  Sex: Male
  Weight: 70 kg

DRUGS (4)
  1. PROPECIA [Suspect]
     Indication: MALE PATTERN BALDNESS
     Route: 048
     Dates: start: 20051220, end: 20070824
  2. PROPECIA [Suspect]
     Route: 048
     Dates: start: 20070828, end: 20070903
  3. ZYLORIC [Suspect]
     Indication: HYPERURICAEMIA
     Route: 048
  4. DIOVAN [Suspect]
     Route: 048

REACTIONS (2)
  - BILE DUCT CANCER [None]
  - LIVER DISORDER [None]
